FAERS Safety Report 26099066 (Version 1)
Quarter: 2025Q4

REPORT INFORMATION
  Report Type: Spontaneous
  Country: US (occurrence: US)
  Receive Date: 20251128
  Receipt Date: 20251128
  Transmission Date: 20260118
  Serious: Yes (Death, Hospitalization)
  Sender: RECORDATI
  Company Number: US-ORPHANEU-2025008535

PATIENT
  Age: 44 Year
  Sex: Male

DRUGS (8)
  1. OSILODROSTAT [Suspect]
     Active Substance: OSILODROSTAT
     Indication: Ectopic ACTH syndrome
     Dosage: 1 MG, BID
  2. OSILODROSTAT [Suspect]
     Active Substance: OSILODROSTAT
     Dosage: 1 MG, QD
  3. CARBOPLATIN [Concomitant]
     Active Substance: CARBOPLATIN
     Indication: Small cell lung cancer
     Dosage: UNK
  4. ETOPOSIDE [Concomitant]
     Active Substance: ETOPOSIDE
     Indication: Small cell lung cancer
     Dosage: UNK
  5. ATEZOLIZUMAB [Concomitant]
     Active Substance: ATEZOLIZUMAB
     Indication: Small cell lung cancer
  6. VORICONAZOLE [Concomitant]
     Active Substance: VORICONAZOLE
     Indication: Aspergillus infection
  7. ALDACTONE [Concomitant]
     Active Substance: SPIRONOLACTONE
     Indication: Product used for unknown indication
  8. INSULIN NOS [Concomitant]
     Active Substance: INSULIN NOS
     Indication: Type 2 diabetes mellitus
     Dosage: BASAL BOLUS INSULIN

REACTIONS (2)
  - Septic shock [Fatal]
  - Off label use [Recovered/Resolved]
